FAERS Safety Report 8144224-9 (Version None)
Quarter: 2012Q1

REPORT INFORMATION
  Report Type: 
  Country: None (occurrence: None)
  Receive Date: 20120214
  Receipt Date: 20120207
  Transmission Date: 20120608
  Serious: Yes (Hospitalization, Other)
  Sender: FDA-Public Use
  Company Number: 2012SP007256

PATIENT
  Sex: Male

DRUGS (1)
  1. RIBAVIRIN [Suspect]
     Indication: HEPATITIS C
     Dates: start: 20010202

REACTIONS (12)
  - PAIN [None]
  - GLAUCOMA [None]
  - CATARACT [None]
  - DEPRESSION [None]
  - HEPATIC CIRRHOSIS [None]
  - DEATH OF RELATIVE [None]
  - POST PROCEDURAL HAEMORRHAGE [None]
  - POST-TRAUMATIC STRESS DISORDER [None]
  - HAEMORRHAGE [None]
  - RETINAL DETACHMENT [None]
  - HEPATIC FIBROSIS [None]
  - INFLUENZA [None]
